FAERS Safety Report 5711736-4 (Version None)
Quarter: 2008Q2

REPORT INFORMATION
  Report Type: 
  Country: None (occurrence: None)
  Receive Date: 20080416
  Receipt Date: 20080407
  Transmission Date: 20081010
  Serious: Yes (Hospitalization)
  Sender: FDA-Public Use
  Company Number: VISP-NO-0804S-0189

PATIENT
  Age: 62 Year
  Sex: Female

DRUGS (4)
  1. VISIPAQUE [Suspect]
     Indication: ACUTE CORONARY SYNDROME
     Dosage: NR, SINGLE DOSE, UNK
     Dates: start: 20080308, end: 20080308
  2. CLOPIDOGREL [Concomitant]
  3. ASPIRIN [Concomitant]
  4. HEPARIN [Concomitant]

REACTIONS (1)
  - ACUTE GENERALISED EXANTHEMATOUS PUSTULOSIS [None]
